FAERS Safety Report 4432846-8 (Version None)
Quarter: 2004Q3

REPORT INFORMATION
  Report Type: 
  Country: None (occurrence: None)
  Receive Date: 20040726
  Receipt Date: 20040518
  Transmission Date: 20050211
  Serious: No
  Sender: FDA-Public Use
  Company Number: USA040466231

PATIENT
  Age: 77 Year
  Sex: Female
  Weight: 60 kg

DRUGS (4)
  1. FORTEO [Suspect]
     Indication: OSTEOPOROSIS
     Dosage: 20 UG/ 1 DAY
     Dates: start: 20030701
  2. CELEBREX [Concomitant]
  3. PRAVACHOL [Concomitant]
  4. MULTI-VITAMIN [Concomitant]

REACTIONS (5)
  - HAEMATOMA [None]
  - OEDEMA PERIPHERAL [None]
  - SKIN TIGHTNESS [None]
  - TENDERNESS [None]
  - VEIN DISORDER [None]
